FAERS Safety Report 4982890-7 (Version None)
Quarter: 2006Q2

REPORT INFORMATION
  Report Type: 
  Country: None (occurrence: None)
  Receive Date: 20060420
  Receipt Date: 20060411
  Transmission Date: 20061013
  Serious: Yes (Disabling)
  Sender: FDA-Public Use
  Company Number: HQ1088328FEB2002

PATIENT
  Age: 24 Year
  Sex: Female
  Weight: 44.04 kg

DRUGS (5)
  1. EFFEXOR XR [Suspect]
     Indication: DEPRESSION
     Dosage: ^SWITCHED ON AND OFF EFFEXOR^
     Dates: start: 20010201, end: 20010601
  2. PERDIEM (PSYLLIUM HYDROPHILIC MUCILLOID/SENNA FRUIT, ) [Suspect]
     Indication: CONSTIPATION
     Dosage: SEE IMAGE
     Dates: start: 19990101, end: 20010101
  3. PERDIEM (PSYLLIUM HYDROPHILIC MUCILLOID/SENNA FRUIT, ) [Suspect]
     Indication: CONSTIPATION
     Dosage: SEE IMAGE
     Dates: start: 20010101
  4. SERZONE [Suspect]
     Indication: DEPRESSION
     Dates: start: 20010401, end: 20010101
  5. ORAL CONTRACEPTIVE NOS (ORAL CONTRACEPTIVE NOS) [Concomitant]

REACTIONS (79)
  - ABDOMINAL DISTENSION [None]
  - ABDOMINAL PAIN LOWER [None]
  - ADRENAL DISORDER [None]
  - ADRENERGIC SYNDROME [None]
  - ALLERGY TO ANIMAL [None]
  - ALOPECIA [None]
  - ALOPECIA EFFLUVIUM [None]
  - ANXIETY [None]
  - ANXIETY DISORDER [None]
  - ASTHMA [None]
  - AUTOIMMUNE DISORDER [None]
  - AUTONOMIC NEUROPATHY [None]
  - BLOOD HEAVY METAL INCREASED [None]
  - BLOOD LUTEINISING HORMONE INCREASED [None]
  - BLOOD OESTROGEN DECREASED [None]
  - BRADYPHRENIA [None]
  - BREAST TENDERNESS [None]
  - CANDIDIASIS [None]
  - CHRONIC FATIGUE SYNDROME [None]
  - CONSTIPATION [None]
  - DEPRESSION [None]
  - DIARRHOEA [None]
  - DIZZINESS [None]
  - DRUG WITHDRAWAL SYNDROME [None]
  - DRY EYE [None]
  - DRY SKIN [None]
  - DYSTONIA [None]
  - DYSURIA [None]
  - EATING DISORDER [None]
  - ENDOMETRIOSIS [None]
  - ERUCTATION [None]
  - EXERCISE TOLERANCE DECREASED [None]
  - EYE SWELLING [None]
  - FATIGUE [None]
  - FEELING OF DESPAIR [None]
  - FIBROMYALGIA [None]
  - FLATULENCE [None]
  - FOOD ALLERGY [None]
  - GASTROINTESTINAL DISORDER [None]
  - GASTROINTESTINAL MOTILITY DISORDER [None]
  - HYPERSENSITIVITY [None]
  - HYPOMENORRHOEA [None]
  - HYPOTHALAMO-PITUITARY DISORDERS [None]
  - IMMUNE SYSTEM DISORDER [None]
  - INCREASED UPPER AIRWAY SECRETION [None]
  - IRRITABLE BOWEL SYNDROME [None]
  - LAXATIVE ABUSE [None]
  - MADAROSIS [None]
  - MELANOSIS COLI [None]
  - MENTAL DISORDER [None]
  - METABOLIC DISORDER [None]
  - MICTURITION DISORDER [None]
  - MUSCLE CONTRACTIONS INVOLUNTARY [None]
  - MUSCLE SPASMS [None]
  - MYDRIASIS [None]
  - NERVOUSNESS [None]
  - NEUROTRANSMITTER LEVEL ALTERED [None]
  - OBSESSIVE THOUGHTS [None]
  - ORTHOSTATIC HYPOTENSION [None]
  - OVERGROWTH BACTERIAL [None]
  - OVULATION PAIN [None]
  - PAIN IN EXTREMITY [None]
  - PALPITATIONS [None]
  - PARAESTHESIA [None]
  - PERNICIOUS ANAEMIA [None]
  - POST-TRAUMATIC STRESS DISORDER [None]
  - RECTOCELE [None]
  - SKIN ATROPHY [None]
  - SNEEZING [None]
  - SOMATISATION DISORDER [None]
  - SUICIDAL IDEATION [None]
  - SWELLING [None]
  - TEARFULNESS [None]
  - THROAT IRRITATION [None]
  - TREMOR [None]
  - URINE ARSENIC INCREASED [None]
  - VISION BLURRED [None]
  - WEIGHT DECREASED [None]
  - WEIGHT INCREASED [None]
